FAERS Safety Report 6415479-3 (Version None)
Quarter: 2009Q4

REPORT INFORMATION
  Report Type: 
  Country: None (occurrence: None)
  Receive Date: 20091027
  Receipt Date: 20091016
  Transmission Date: 20100525
  Serious: Yes (Other)
  Sender: FDA-Public Use
  Company Number: US-JNJFOC-20090304670

PATIENT
  Age: 28 Year
  Sex: Male
  Weight: 93.9 kg

DRUGS (2)
  1. INVEGA [Suspect]
     Route: 048
  2. INVEGA [Suspect]
     Indication: SCHIZOPHRENIA
     Route: 048

REACTIONS (3)
  - DYSPAREUNIA [None]
  - EJACULATION DELAYED [None]
  - SEMEN DISCOLOURATION [None]
